FAERS Safety Report 5766815-2 (Version None)
Quarter: 2008Q2

REPORT INFORMATION
  Report Type: 
  Country: None (occurrence: None)
  Receive Date: 20080612
  Receipt Date: 20080530
  Transmission Date: 20081010
  Serious: Yes (Hospitalization)
  Sender: FDA-Public Use
  Company Number: US-JNJFOC-20080600496

PATIENT
  Sex: Female

DRUGS (3)
  1. REMICADE [Suspect]
     Route: 042
  2. REMICADE [Suspect]
     Indication: RHEUMATOID ARTHRITIS
     Route: 042
  3. STEROIDS [Concomitant]
     Indication: PREMEDICATION

REACTIONS (5)
  - DEHYDRATION [None]
  - DIARRHOEA [None]
  - IRRITABLE BOWEL SYNDROME [None]
  - LOWER RESPIRATORY TRACT INFECTION [None]
  - VASCULITIS [None]
